FAERS Safety Report 4405267-1 (Version None)
Quarter: 2004Q3

REPORT INFORMATION
  Report Type: 
  Country: None (occurrence: None)
  Receive Date: 20040716
  Receipt Date: 20040709
  Transmission Date: 20050211
  Serious: Yes (Life-Threatening)
  Sender: FDA-Public Use
  Company Number: 2004AP03128

PATIENT
  Age: 60 Year
  Sex: Male

DRUGS (17)
  1. IRESSA [Suspect]
     Indication: LUNG ADENOCARCINOMA
     Dosage: 250 MG DAILY PO
     Route: 048
     Dates: start: 20031018, end: 20040404
  2. IRESSA [Suspect]
     Indication: NON-SMALL CELL LUNG CANCER
     Dosage: 250 MG DAILY PO
     Route: 048
     Dates: start: 20031018, end: 20040404
  3. IRESSA [Suspect]
     Indication: LUNG ADENOCARCINOMA
     Dosage: 250 MG QOD PO
     Route: 048
     Dates: start: 20040405, end: 20040518
  4. IRESSA [Suspect]
     Indication: NON-SMALL CELL LUNG CANCER
     Dosage: 250 MG QOD PO
     Route: 048
     Dates: start: 20040405, end: 20040518
  5. IRESSA [Suspect]
     Indication: LUNG ADENOCARCINOMA
     Dosage: 250 MG Q3D PO
     Route: 048
     Dates: start: 20040518, end: 20040518
  6. IRESSA [Suspect]
     Indication: NON-SMALL CELL LUNG CANCER
     Dosage: 250 MG Q3D PO
     Route: 048
     Dates: start: 20040518, end: 20040518
  7. LOXONIN [Suspect]
     Indication: PAIN
     Dosage: 180 MG DAILY PO
     Route: 048
     Dates: start: 20030811, end: 20040201
  8. MS CONTIN [Concomitant]
  9. GASMOTIN [Concomitant]
  10. AMLODIN [Concomitant]
  11. UBRETID [Concomitant]
  12. EBRANTIL [Concomitant]
  13. OXYCONTIN [Concomitant]
  14. DORNER [Concomitant]
  15. JUVELA [Concomitant]
  16. HALCION [Concomitant]
  17. RADIOTHERAPY [Concomitant]

REACTIONS (12)
  - ABDOMINAL PAIN [None]
  - ABNORMAL FAECES [None]
  - BUTTOCK PAIN [None]
  - DRUG INTERACTION [None]
  - ERYTHEMA [None]
  - GASTROINTESTINAL MUCOSAL DISORDER [None]
  - INFUSION SITE INFECTION [None]
  - INTESTINAL ISCHAEMIA [None]
  - LYMPHOCYTE STIMULATION TEST POSITIVE [None]
  - MELAENA [None]
  - METASTATIC NEOPLASM [None]
  - OSTEOLYSIS [None]
